FAERS Safety Report 8571612-9 (Version None)
Quarter: 2012Q3

REPORT INFORMATION
  Report Type: 
  Country: None (occurrence: None)
  Receive Date: 20120806
  Receipt Date: 20120801
  Transmission Date: 20120928
  Serious: Yes (Other)
  Sender: FDA-Public Use
  Company Number: PHEH2012US012773

PATIENT
  Sex: Male

DRUGS (1)
  1. AREDIA [Suspect]
     Route: 042

REACTIONS (6)
  - URINARY RETENTION [None]
  - ERECTILE DYSFUNCTION [None]
  - URETHRAL STENOSIS [None]
  - COUGH [None]
  - BRONCHITIS [None]
  - RENAL CYST [None]
